FAERS Safety Report 8584823 (Version 3)
Quarter: 2021Q2

REPORT INFORMATION
  Report Type: Report from Study
  Country: GB (occurrence: GB)
  Receive Date: 20120529
  Receipt Date: 20210528
  Transmission Date: 20210717
  Serious: Yes (Death, Hospitalization)
  Sender: FDA-Public Use
  Company Number: GB-MYLANLABS-2012S1010011

PATIENT
  Age: 67 Year
  Sex: Male
  Weight: 85 kg

DRUGS (8)
  1. BEVACIZUMAB. [Suspect]
     Active Substance: BEVACIZUMAB
     Dosage: 655 MG,UNK
     Route: 042
     Dates: start: 20111117
  2. BEVACIZUMAB. [Suspect]
     Active Substance: BEVACIZUMAB
     Indication: GASTRIC CANCER
     Dosage: 665MG
     Route: 042
     Dates: start: 20110922
  3. CISPLATIN. [Suspect]
     Active Substance: CISPLATIN
     Dosage: 120 MG,UNK
     Route: 042
     Dates: start: 20111117
  4. EPIRUBICIN [Suspect]
     Active Substance: EPIRUBICIN
     Indication: GASTRIC CANCER
     Dosage: 50 MG,UNK
     Route: 042
     Dates: start: 20111117
  5. EPIRUBICIN [Suspect]
     Active Substance: EPIRUBICIN
     Dosage: UNK
     Route: 042
     Dates: start: 20110922
  6. CISPLATIN. [Suspect]
     Active Substance: CISPLATIN
     Indication: GASTRIC CANCER
     Dosage: UNK
     Route: 042
     Dates: start: 20110922
  7. CAPECITABINE. [Suspect]
     Active Substance: CAPECITABINE
     Dosage: 5250 MG,UNK
     Route: 048
     Dates: start: 20111208
  8. CAPECITABINE. [Suspect]
     Active Substance: CAPECITABINE
     Indication: GASTRIC CANCER
     Dosage: UNK
     Route: 048
     Dates: start: 20110922

REACTIONS (2)
  - Post procedural haemorrhage [Fatal]
  - Gastrointestinal anastomotic leak [Recovered/Resolved with Sequelae]

NARRATIVE: CASE EVENT DATE: 20120123
